FAERS Safety Report 14479369 (Version 1)
Quarter: 2018Q1

REPORT INFORMATION
  Report Type: Spontaneous
  Country: ES (occurrence: ES)
  Receive Date: 20180202
  Receipt Date: 20180202
  Transmission Date: 20180509
  Serious: Yes (Hospitalization, Other)
  Sender: FDA-Public Use
  Company Number: ES-IROKO PHARMACEUTICALS LLC-ES-I09001-18-00008

PATIENT
  Sex: Male
  Weight: 1.4 kg

DRUGS (6)
  1. PROGESTERON [Concomitant]
     Active Substance: PROGESTERONE
     Indication: TOCOLYSIS
     Route: 064
  2. INDOMETHACIN AMBIGUOUS [Suspect]
     Active Substance: INDOMETHACIN
     Indication: TOCOLYSIS
     Route: 064
  3. ANALGESICS [Concomitant]
     Active Substance: UNSPECIFIED INGREDIENT
     Indication: ARTHRALGIA
     Route: 064
  4. ATOSIBAN [Concomitant]
     Active Substance: ATOSIBAN
     Indication: TOCOLYSIS
     Route: 064
  5. MAGNESIUM SULPHATE [Concomitant]
     Active Substance: MAGNESIUM SULFATE
     Indication: NERVOUS SYSTEM DISORDER
     Route: 064
  6. MAGNESIUM SULPHATE [Concomitant]
     Active Substance: MAGNESIUM SULFATE
     Indication: PROPHYLAXIS

REACTIONS (3)
  - Foetal growth restriction [Unknown]
  - Premature baby [Unknown]
  - Foetal exposure during pregnancy [Recovered/Resolved]
